FAERS Safety Report 9609558 (Version 1)
Quarter: 2013Q4

REPORT INFORMATION
  Report Type: Spontaneous
  Country: US (occurrence: US)
  Receive Date: 20131009
  Receipt Date: 20131009
  Transmission Date: 20140711
  Serious: No
  Sender: FDA-Public Use
  Company Number: US-PURDUE-USA-2012-0095321

PATIENT
  Sex: Male

DRUGS (3)
  1. BUTRANS [Suspect]
     Indication: PRODUCT USED FOR UNKNOWN INDICATION
     Dosage: 10 MCG, UNK
     Route: 062
  2. BUTRANS [Suspect]
     Dosage: 20 MCG, (PHYSICIAN INSTRUCTED PT TO CUT IN HALF AND USE SECOND HALF IF NEC.)
     Route: 062
  3. TRAMADOL (SIMILAR TO NDA 21-745) [Concomitant]
     Indication: PRODUCT USED FOR UNKNOWN INDICATION
     Dosage: ^A LOT^

REACTIONS (2)
  - Wrong technique in drug usage process [Unknown]
  - Drug effect decreased [Unknown]
